FAERS Safety Report 8584195-4 (Version None)
Quarter: 2012Q3

REPORT INFORMATION
  Report Type: 
  Country: None (occurrence: None)
  Receive Date: 20120810
  Receipt Date: 20120801
  Transmission Date: 20120928
  Serious: Yes (Hospitalization, Other)
  Sender: FDA-Public Use
  Company Number: US-BIOGENIDEC-2010BI023450

PATIENT
  Age: 71 Year
  Sex: Female

DRUGS (12)
  1. STOOL SOFTENER (NOS) [Concomitant]
  2. DONEPEZIL HCL [Concomitant]
     Route: 048
  3. ASPIRIN [Concomitant]
  4. FOSAMAX [Concomitant]
     Indication: OSTEOPOROSIS
     Route: 048
  5. SYNTHROID [Concomitant]
  6. AMITRIPTYLINE HCL [Concomitant]
  7. DETROL [Concomitant]
     Route: 048
  8. LANTUS [Concomitant]
     Dosage: DOSE UNIT:40
  9. TYSABRI [Suspect]
     Indication: MULTIPLE SCLEROSIS
     Route: 042
     Dates: start: 20080527, end: 20100727
  10. THYROID CAPSULES (NOS) [Concomitant]
  11. JANUVIA [Concomitant]
  12. MULTI-VITAMIN [Concomitant]

REACTIONS (5)
  - URINARY TRACT INFECTION [None]
  - PROGRESSIVE MULTIFOCAL LEUKOENCEPHALOPATHY [None]
  - HYPOGLYCAEMIA [None]
  - FATIGUE [None]
  - FEELING ABNORMAL [None]
